FAERS Safety Report 25767989 (Version 1)
Quarter: 2025Q3

REPORT INFORMATION
  Report Type: Spontaneous
  Country: US (occurrence: US)
  Receive Date: 20250905
  Receipt Date: 20250905
  Transmission Date: 20251021
  Serious: No
  Sender: DOMPE FARMACEUTICI
  Company Number: US-FARMAPROD-202505-1686

PATIENT
  Age: 72 Year
  Sex: Female

DRUGS (22)
  1. OXERVATE [Suspect]
     Active Substance: CENEGERMIN-BKBJ
     Indication: Neurotrophic keratopathy
     Route: 047
     Dates: start: 20250516
  2. OXERVATE [Suspect]
     Active Substance: CENEGERMIN-BKBJ
  3. TYLENOL [Concomitant]
     Active Substance: ACETAMINOPHEN
  4. MELOXICAM [Concomitant]
     Active Substance: MELOXICAM
  5. IVIZIA [Concomitant]
     Active Substance: POVIDONE
  6. OPTASE PF DRY EYE [Concomitant]
  7. HEALTH BOOSTER [Concomitant]
  8. PROLIA [Concomitant]
     Active Substance: DENOSUMAB
  9. TIMOLOL [Concomitant]
     Active Substance: TIMOLOL
  10. ROCKLATAN [Concomitant]
     Active Substance: LATANOPROST\NETARSUDIL MESYLATE
  11. SYSTANE ULTRA PF [Concomitant]
  12. ATORVASTATIN  CALCIUM [Concomitant]
  13. SERTRALINE HYDROCHLORIDE [Concomitant]
     Active Substance: SERTRALINE HYDROCHLORIDE
  14. PRAMIPEXOLE DIHYDROCHLORIDE [Concomitant]
     Active Substance: PRAMIPEXOLE DIHYDROCHLORIDE
  15. VITAMIN C [Concomitant]
     Active Substance: ASCORBIC ACID
  16. VITAMIN D3 [Concomitant]
     Active Substance: CHOLECALCIFEROL
  17. GLUCOSAMINE AND CHONDROITIN WITH MSM [Concomitant]
  18. DOCUSATE SODIUM [Concomitant]
     Active Substance: DOCUSATE SODIUM
  19. ALFALFA [Concomitant]
     Active Substance: ALFALFA
  20. COLON CLEANSE [ALOE SPP. LEAF;CHITIN;FIBRE NOS;STARCH] [Concomitant]
  21. QUNOL MEGA COQ10 [Concomitant]
  22. PROBIOTIC 100B CELL [Concomitant]

REACTIONS (11)
  - Eye irritation [Unknown]
  - Dry eye [Unknown]
  - Eye irritation [Unknown]
  - Ocular hyperaemia [Unknown]
  - Vision blurred [Unknown]
  - Eye discharge [Unknown]
  - Eye pain [Unknown]
  - Muscle spasms [Unknown]
  - Nausea [Unknown]
  - Vomiting [Unknown]
  - Headache [Unknown]

NARRATIVE: CASE EVENT DATE: 20250516
